FAERS Safety Report 9257767 (Version 1)
Quarter: 2013Q1

REPORT INFORMATION
  Report Type: Spontaneous
  Country: US (occurrence: None)
  Receive Date: 20121212
  Receipt Date: 20121212
  Transmission Date: 20140127
  Serious: No
  Sender: FDA-Public Use
  Company Number: 1208USA012329

PATIENT
  Age: 55 Year
  Sex: Female

DRUGS (3)
  1. REBETOL [Suspect]
     Indication: HEPATITIS C
     Dates: start: 20120614
  2. VICTRELIS [Suspect]
     Indication: HEPATITIS C
     Dates: start: 20120713
  3. PEGASYS [Suspect]
     Indication: HEPATITIS C
     Dates: start: 20120614

REACTIONS (6)
  - Bone pain [None]
  - Red blood cell count decreased [None]
  - Fatigue [None]
  - Asthenia [None]
  - Anaemia [None]
  - Decreased appetite [None]
